FAERS Safety Report 4575080-3 (Version None)
Quarter: 2005Q1

REPORT INFORMATION
  Report Type: 
  Country: None (occurrence: None)
  Receive Date: 20050208
  Receipt Date: 20050113
  Transmission Date: 20050727
  Serious: Yes (Hospitalization)
  Sender: FDA-Public Use
  Company Number: NO-GLAXOSMITHKLINE-B0365431A

PATIENT
  Age: 59 Year
  Sex: Male

DRUGS (7)
  1. AVANDIA [Suspect]
     Dosage: 4MG PER DAY
     Route: 065
     Dates: start: 20041015
  2. LESCOL [Suspect]
     Dosage: 80MG PER DAY
     Route: 048
  3. KALEORID [Concomitant]
     Dosage: 1U THREE TIMES PER DAY
     Route: 048
  4. PREDNISOLONE [Concomitant]
     Indication: POLYMYALGIA RHEUMATICA
     Route: 065
     Dates: start: 19980101
  5. DIURAL [Concomitant]
     Dosage: 40MG TWICE PER DAY
     Route: 048
  6. AMARYL [Concomitant]
     Dosage: 3MG PER DAY
     Route: 048
  7. NEXIUM [Concomitant]
     Dosage: 40MG PER DAY
     Route: 048

REACTIONS (4)
  - ALANINE AMINOTRANSFERASE INCREASED [None]
  - ASPARTATE AMINOTRANSFERASE INCREASED [None]
  - BLOOD CREATINE PHOSPHOKINASE INCREASED [None]
  - MYOSITIS [None]
